FAERS Safety Report 21256408 (Version 6)
Quarter: 2023Q1

REPORT INFORMATION
  Report Type: Report from Study
  Country: CA (occurrence: CA)
  Receive Date: 20220826
  Receipt Date: 20230111
  Transmission Date: 20230417
  Serious: Yes (Other)
  Sender: FDA-Public Use
  Company Number: CA-JNJFOC-20220850618

PATIENT
  Age: 16 Year
  Sex: Male
  Weight: 50 kg

DRUGS (2)
  1. REMICADE [Suspect]
     Active Substance: INFLIXIMAB
     Indication: Crohn^s disease
     Route: 041
     Dates: start: 20181009
  2. REMICADE [Suspect]
     Active Substance: INFLIXIMAB
     Dosage: ON 20-SEP-2022 PATIENT RECEIVED 48TH INFLIXIMAB RECOMBINANT INFUSION OF 700MG?EXPIRY DATE-28-FEB-202
     Route: 041

REACTIONS (6)
  - Crohn^s disease [Not Recovered/Not Resolved]
  - Therapeutic response shortened [Unknown]
  - Gingival bleeding [Unknown]
  - Faeces soft [Unknown]
  - Malaise [Unknown]
  - Noninfective gingivitis [Unknown]

NARRATIVE: CASE EVENT DATE: 20220819
